FAERS Safety Report 5823378-0 (Version None)
Quarter: 2008Q3

REPORT INFORMATION
  Report Type: 
  Country: None (occurrence: None)
  Receive Date: 20080725
  Receipt Date: 20080303
  Transmission Date: 20090109
  Serious: No
  Sender: FDA-Public Use
  Company Number: A0710246A

PATIENT
  Age: 75 Year
  Sex: Female
  Weight: 92.7 kg

DRUGS (2)
  1. HYCAMTIN [Suspect]
     Dosage: 5.55MG WEEKLY
     Route: 042
     Dates: start: 20070327
  2. NO CONCURRENT MEDICATION [Concomitant]

REACTIONS (2)
  - ILL-DEFINED DISORDER [None]
  - SWELLING [None]
